FAERS Safety Report 6137918-8 (Version None)
Quarter: 2009Q1

REPORT INFORMATION
  Report Type: 
  Country: None (occurrence: None)
  Receive Date: 20090331
  Receipt Date: 20090317
  Transmission Date: 20090719
  Serious: Yes (Other)
  Sender: FDA-Public Use
  Company Number: US-PFIZER INC-2009185236

PATIENT
  Sex: Female

DRUGS (5)
  1. PROVERA [Suspect]
     Indication: HORMONE REPLACEMENT THERAPY
     Dosage: 10 MG, FIVE TIMES DAILY
     Route: 065
     Dates: start: 19920708, end: 19920717
  2. PROVERA [Suspect]
     Dosage: 2.5 MG, 1X/DAY
     Dates: start: 19930715, end: 19960910
  3. PREMARIN [Suspect]
     Indication: HORMONE REPLACEMENT THERAPY
     Dosage: 0.625 MG, 1X/DAY
     Dates: start: 19930715, end: 19960910
  4. PREMPRO [Suspect]
     Indication: HORMONE REPLACEMENT THERAPY
     Dosage: UNK
     Route: 065
     Dates: start: 19960910, end: 19981112
  5. OXYCODONE [Concomitant]
     Indication: PAIN
     Dosage: UNK
     Dates: start: 19981028, end: 19981031

REACTIONS (1)
  - BREAST CANCER [None]
